FAERS Safety Report 5784302-2 (Version None)
Quarter: 2008Q2

REPORT INFORMATION
  Report Type: 
  Country: None (occurrence: None)
  Receive Date: 20080605
  Receipt Date: 20080402
  Transmission Date: 20081010
  Serious: No
  Sender: FDA-Public Use
  Company Number: A0718921A

PATIENT
  Age: 25 Year
  Sex: Female
  Weight: 75 kg

DRUGS (1)
  1. ALLI [Suspect]

REACTIONS (4)
  - CONSTIPATION [None]
  - DEFAECATION URGENCY [None]
  - FAECAL VOLUME DECREASED [None]
  - FLATULENCE [None]
